FAERS Safety Report 5669878-8 (Version None)
Quarter: 2008Q1

REPORT INFORMATION
  Report Type: 
  Country: None (occurrence: None)
  Receive Date: 20080317
  Receipt Date: 20080305
  Transmission Date: 20080703
  Serious: Yes (Other)
  Sender: FDA-Public Use
  Company Number: GB-PFIZER INC-2008021174

PATIENT
  Age: 31 Year
  Sex: Female

DRUGS (2)
  1. CHAMPIX [Suspect]
     Indication: SMOKING CESSATION THERAPY
     Route: 048
     Dates: start: 20080131, end: 20080215
  2. LOESTRIN 1.5/30 [Concomitant]
     Indication: CONTRACEPTION
     Route: 048

REACTIONS (5)
  - DEPRESSED MOOD [None]
  - LIBIDO DECREASED [None]
  - NAUSEA [None]
  - RASH [None]
  - TEARFULNESS [None]
